FAERS Safety Report 10249834 (Version 1)
Quarter: 2014Q2

REPORT INFORMATION
  Report Type: Spontaneous
  Country: US (occurrence: US)
  Receive Date: 20140620
  Receipt Date: 20140620
  Transmission Date: 20141212
  Serious: No
  Sender: FDA-Public Use
  Company Number: US-ASTRAZENECA-2014SE40627

PATIENT
  Age: 62 Year
  Sex: Female
  Weight: 90.7 kg

DRUGS (9)
  1. SYMBICORT [Suspect]
     Indication: ASTHMA
     Dosage: 80/4.5 MCG, 2 PUFFS BID
     Route: 055
     Dates: start: 2012
  2. SYMBICORT [Suspect]
     Indication: ASTHMA
     Dosage: 3 PUFFS , UNKNOWN
     Route: 055
     Dates: start: 201312
  3. SYMBICORT [Suspect]
     Indication: ASTHMA
     Dosage: 3 PUFFS , UNKNOWN
     Route: 055
     Dates: start: 201403
  4. CARVEDILOL [Concomitant]
     Route: 048
     Dates: start: 2011
  5. LOSSARTAN/HCTZ [Concomitant]
     Indication: HYPERTENSION
     Dosage: 100/12.5 MG DAILY
     Route: 048
     Dates: start: 2011
  6. SINGULAIR [Concomitant]
     Indication: MULTIPLE ALLERGIES
     Dosage: 10 MG DAILY PRN
     Route: 048
  7. SINGULAIR [Concomitant]
     Indication: ASTHMA
     Dosage: 10 MG DAILY PRN
     Route: 048
  8. ASPIRIN [Concomitant]
     Indication: CARDIOVASCULAR EVENT PROPHYLAXIS
     Route: 048
  9. FISH OIL [Concomitant]
     Indication: CARDIOVASCULAR EVENT PROPHYLAXIS
     Route: 048
     Dates: start: 2009

REACTIONS (5)
  - Dyspnoea [Unknown]
  - Circumstance or information capable of leading to medication error [Unknown]
  - Intentional product misuse [Unknown]
  - Drug dose omission [Unknown]
  - Product quality issue [None]
